FAERS Safety Report 6862212-7 (Version None)
Quarter: 2010Q3

REPORT INFORMATION
  Report Type: 
  Country: None (occurrence: None)
  Receive Date: 20100719
  Receipt Date: 20100702
  Transmission Date: 20110219
  Serious: Yes (Hospitalization, Other)
  Sender: FDA-Public Use
  Company Number: A-US2010-37197

PATIENT
  Age: 56 Year
  Sex: Female
  Weight: 44.4 kg

DRUGS (19)
  1. TRACLEER [Suspect]
     Indication: PULMONARY ARTERIAL HYPERTENSION
     Dosage: 125 MG, BID, ORAL, 62.5 MG, BID, ORAL
     Route: 048
     Dates: start: 20021209, end: 20030206
  2. TRACLEER [Suspect]
     Indication: PULMONARY ARTERIAL HYPERTENSION
     Dosage: 125 MG, BID, ORAL, 62.5 MG, BID, ORAL
     Route: 048
     Dates: start: 20030207
  3. COUMADIN [Suspect]
  4. ADVAIR DISKUS 100/50 [Concomitant]
  5. AMBIEN [Concomitant]
  6. AVINZA [Concomitant]
  7. CALTRATE (CALCIUM) [Concomitant]
  8. VITAMIN D [Concomitant]
  9. FERROUS SULFATE TAB [Concomitant]
  10. FUROSEMIDE [Concomitant]
  11. POTASSIUM CHLORIDE [Concomitant]
  12. LACTULOSE [Concomitant]
  13. LISINOPRIL [Concomitant]
  14. LYRICA [Concomitant]
  15. METHADONE HCL [Concomitant]
  16. MULTIVITAMINS AND IRON [Concomitant]
  17. NEXIUM (ESOMEPRASOLE MAGNESIUM) [Concomitant]
  18. PROMETHAZINE HCL [Concomitant]
  19. PENTOXIFYLLINE [Concomitant]

REACTIONS (8)
  - ANAEMIA [None]
  - GASTRIC VARICES [None]
  - GASTRITIS [None]
  - HAEMORRHAGE [None]
  - HEPATIC CIRRHOSIS [None]
  - HIATUS HERNIA [None]
  - OESOPHAGEAL ULCER [None]
  - OESOPHAGITIS [None]
